FAERS Safety Report 19166329 (Version 1)
Quarter: 2021Q2

REPORT INFORMATION
  Report Type: Spontaneous
  Country: US (occurrence: US)
  Receive Date: 20210420
  Receipt Date: 20210420
  Transmission Date: 20210717
  Serious: No
  Sender: FDA-Public Use
  Company Number: None

PATIENT
  Age: 70 Year
  Sex: Male
  Weight: 79 kg

DRUGS (1)
  1. GAZYVA [Suspect]
     Active Substance: OBINUTUZUMAB
     Indication: MALIGNANT MELANOMA
     Route: 041
     Dates: start: 20210420

REACTIONS (2)
  - Dizziness [None]
  - Chills [None]

NARRATIVE: CASE EVENT DATE: 20210420
